FAERS Safety Report 15113517 (Version 2)
Quarter: 2018Q3

REPORT INFORMATION
  Report Type: Report from Study
  Country: IT (occurrence: IT)
  Receive Date: 20180706
  Receipt Date: 20180726
  Transmission Date: 20181010
  Serious: Yes (Hospitalization)
  Sender: FDA-Public Use
  Company Number: IT-TEVA-2018-IT-921601

PATIENT
  Age: 31 Year
  Sex: Female

DRUGS (3)
  1. PANTORC 20 MG COMPRESSE GASTRORESISTENTI [Suspect]
     Active Substance: PANTOPRAZOLE SODIUM
     Indication: DRUG ABUSE
     Route: 048
     Dates: start: 20180422, end: 20180422
  2. PARACETAMOLO [Suspect]
     Active Substance: ACETAMINOPHEN
     Indication: DRUG ABUSE
     Route: 048
     Dates: start: 20180422, end: 20180422
  3. LANSOPRAZOLE. [Suspect]
     Active Substance: LANSOPRAZOLE
     Indication: DRUG ABUSE
     Route: 048
     Dates: start: 20180422, end: 20180422

REACTIONS (5)
  - Drug abuse [Recovering/Resolving]
  - Bradyphrenia [Recovering/Resolving]
  - Oropharyngeal pain [Recovering/Resolving]
  - Intentional self-injury [Recovering/Resolving]
  - Hypotension [Recovering/Resolving]

NARRATIVE: CASE EVENT DATE: 20180422
